FAERS Safety Report 4974932-X (Version None)
Quarter: 2006Q2

REPORT INFORMATION
  Report Type: 
  Country: None (occurrence: None)
  Receive Date: 20060418
  Receipt Date: 20060405
  Transmission Date: 20061013
  Serious: Yes (Death)
  Sender: FDA-Public Use
  Company Number: 2006UW06558

PATIENT

DRUGS (2)
  1. SEROQUEL [Suspect]
     Route: 048
  2. DIFLUCAN [Concomitant]

REACTIONS (1)
  - DEATH [None]
